FAERS Safety Report 14832133 (Version 1)
Quarter: 2018Q2

REPORT INFORMATION
  Report Type: Spontaneous
  Country: US (occurrence: US)
  Receive Date: 20180410
  Receipt Date: 20180410
  Transmission Date: 20180711
  Serious: Yes (Hospitalization)
  Sender: FDA-Public Use
  Company Number: None

PATIENT
  Age: 60 Year
  Sex: Female

DRUGS (1)
  1. IBRANCE [Suspect]
     Active Substance: PALBOCICLIB
     Indication: BREAST CANCER
     Route: 048
     Dates: start: 20180319, end: 20180402

REACTIONS (4)
  - Diarrhoea [None]
  - Vomiting [None]
  - Neutropenia [None]
  - Fatigue [None]

NARRATIVE: CASE EVENT DATE: 20180402
